FAERS Safety Report 22251474 (Version 2)
Quarter: 2023Q2

REPORT INFORMATION
  Report Type: Report from Study
  Country: US (occurrence: US)
  Receive Date: 20230425
  Receipt Date: 20230503
  Transmission Date: 20230721
  Serious: No
  Sender: FDA-Public Use
  Company Number: US-BRISTOL-MYERS SQUIBB COMPANY-2023-058770

PATIENT
  Age: 69 Year
  Sex: Male
  Weight: 79.37 kg

DRUGS (1)
  1. ORENCIA [Suspect]
     Active Substance: ABATACEPT
     Indication: Rheumatoid arthritis
     Route: 058
     Dates: start: 202107

REACTIONS (5)
  - Device malfunction [Unknown]
  - Device leakage [Unknown]
  - Joint stiffness [Unknown]
  - Device difficult to use [Unknown]
  - Product dose omission issue [Unknown]
